FAERS Safety Report 9486545 (Version 1)
Quarter: 2013Q3

REPORT INFORMATION
  Report Type: Spontaneous
  Country: US (occurrence: None)
  Receive Date: 20130827
  Receipt Date: 20130827
  Transmission Date: 20140515
  Serious: Yes (Life-Threatening, Disabling, Other)
  Sender: FDA-Public Use
  Company Number: 163-POMAL-13071158

PATIENT
  Age: 65 Year
  Sex: Female
  Weight: 63.96 kg

DRUGS (10)
  1. POMALYST [Suspect]
     Indication: PLASMA CELL MYELOMA
     Dosage: 4 MG, 1 IN 1 D, PO
     Route: 048
     Dates: start: 201302
  2. EFFEXOR SR (VENLAFAXINE) [Concomitant]
  3. MVI (MVI) [Concomitant]
  4. CALCIUM + MAGNESIUM +VITAMIN D (CALMAG D) [Concomitant]
  5. PRAVASTATIN (PRAVASTATIN) [Concomitant]
  6. PRILOSEC [Concomitant]
  7. COMPAZINE (PROCHLORPERAZINE EDISYLATE) [Concomitant]
  8. VITAMIN C [Concomitant]
  9. BLOOD (BLOOD AND RELATED PRODUCTS) (INJECTION FOR INFUSION) [Concomitant]
  10. KCL (POTASSIUM CHLORIDE) [Concomitant]

REACTIONS (5)
  - Neutrophil count decreased [None]
  - Red blood cell count decreased [None]
  - Haemoglobin decreased [None]
  - Platelet count decreased [None]
  - Light chain analysis increased [None]
